FAERS Safety Report 4742819-3 (Version None)
Quarter: 2005Q3

REPORT INFORMATION
  Report Type: 
  Country: None (occurrence: None)
  Receive Date: 20050811
  Receipt Date: 20050614
  Transmission Date: 20060218
  Serious: Yes (Life-Threatening)
  Sender: FDA-Public Use
  Company Number: JP-GLAXOSMITHKLINE-B0384740A

PATIENT
  Age: 24 Year
  Sex: Female

DRUGS (2)
  1. PAXIL [Suspect]
     Indication: DEPRESSION
     Route: 048
     Dates: start: 20050526, end: 20050604
  2. UNKNOWN [Concomitant]
     Route: 048
     Dates: start: 20050604, end: 20050604

REACTIONS (10)
  - CONVULSION [None]
  - DEPRESSED LEVEL OF CONSCIOUSNESS [None]
  - DIARRHOEA [None]
  - DRUG TOXICITY [None]
  - HEPATIC FAILURE [None]
  - HYPERHIDROSIS [None]
  - MYDRIASIS [None]
  - OVERDOSE [None]
  - SEROTONIN SYNDROME [None]
  - TACHYCARDIA [None]
